FAERS Safety Report 8887600 (Version 1)
Quarter: 2012Q4

REPORT INFORMATION
  Report Type: Spontaneous
  Country: US (occurrence: None)
  Receive Date: 20121101
  Receipt Date: 20121101
  Transmission Date: 20130627
  Serious: Yes (Other)
  Sender: FDA-Public Use
  Company Number: None

PATIENT
  Age: 66 Year
  Sex: Male
  Weight: 76.2 kg

DRUGS (1)
  1. VENLAFAXINE [Suspect]
     Indication: DYSTHYMIA
     Route: 048
     Dates: start: 20121014, end: 20121017

REACTIONS (10)
  - Paraesthesia [None]
  - Paraesthesia [None]
  - Heart rate increased [None]
  - Blood pressure increased [None]
  - Palpitations [None]
  - Asthenia [None]
  - Feeling abnormal [None]
  - Pollakiuria [None]
  - Blood potassium decreased [None]
  - Haemoglobin decreased [None]
